FAERS Safety Report 5126717-1 (Version None)
Quarter: 2006Q4

REPORT INFORMATION
  Report Type: 
  Country: None (occurrence: None)
  Receive Date: 20061013
  Receipt Date: 20060522
  Transmission Date: 20070319
  Serious: Yes (Death, Hospitalization)
  Sender: FDA-Public Use
  Company Number: US-BAYER-200613480BWH

PATIENT
  Age: 44 Year
  Sex: Female
  Weight: 110 kg

DRUGS (9)
  1. SORAFENIB [Suspect]
     Indication: METASTATIC MALIGNANT MELANOMA
     Dosage: TOTAL DAILY DOSE: 800 MG  UNIT DOSE: 200 MG
     Route: 048
     Dates: start: 20051003, end: 20060501
  2. DTIC-DOME [Suspect]
     Indication: METASTATIC MALIGNANT MELANOMA
     Dosage: UNIT DOSE: 1000 MG/M2
     Route: 042
     Dates: start: 20051003, end: 20060410
  3. WELLBUTRIN [Concomitant]
     Dosage: TOTAL DAILY DOSE: 400 MG
  4. EFFEXOR [Concomitant]
  5. KLONOPIN [Concomitant]
  6. TYLENOL [Concomitant]
     Dosage: TOTAL DAILY DOSE: 2000 MG
  7. REGULAR INSULIN [Concomitant]
  8. AMBIEN [Concomitant]
  9. STATIN [Concomitant]

REACTIONS (18)
  - ACTIVATED PARTIAL THROMBOPLASTIN TIME PROLONGED [None]
  - ASCITES [None]
  - BLOOD FIBRINOGEN INCREASED [None]
  - BLOOD PRESSURE DECREASED [None]
  - CHEST PAIN [None]
  - DISORIENTATION [None]
  - ELECTROCARDIOGRAM LOW VOLTAGE [None]
  - ELECTROCARDIOGRAM POOR R-WAVE PROGRESSION [None]
  - GENERAL PHYSICAL HEALTH DETERIORATION [None]
  - HEPATIC FAILURE [None]
  - HYPOTENSION [None]
  - MALIGNANT NEOPLASM PROGRESSION [None]
  - PROTHROMBIN TIME PROLONGED [None]
  - RESPIRATORY DISTRESS [None]
  - SEPSIS [None]
  - SINUS TACHYCARDIA [None]
  - THROMBOCYTOPENIA [None]
  - WHITE BLOOD CELL COUNT INCREASED [None]
